FAERS Safety Report 25738735 (Version 1)
Quarter: 2025Q3

REPORT INFORMATION
  Report Type: Spontaneous
  Country: US (occurrence: US)
  Receive Date: 20250829
  Receipt Date: 20250829
  Transmission Date: 20251021
  Serious: No
  Sender: COLGATE
  Company Number: US-COLGATE PALMOLIVE COMPANY-20240701189

PATIENT

DRUGS (1)
  1. COLGATE TOTAL WHITENING [Suspect]
     Active Substance: SODIUM FLUORIDE\TRICLOSAN

REACTIONS (1)
  - Oral pain [Unknown]
